FAERS Safety Report 8342791-3 (Version None)
Quarter: 2012Q2

REPORT INFORMATION
  Report Type: 
  Country: None (occurrence: None)
  Receive Date: 20120508
  Receipt Date: 20120425
  Transmission Date: 20120825
  Serious: Yes (Other)
  Sender: FDA-Public Use
  Company Number: JP-VERTEX PHARMACEUTICALS INC.-AE-2012-006219

PATIENT
  Age: 62 Year
  Sex: Male

DRUGS (8)
  1. CANDESARTAN CILEXETIL [Concomitant]
     Route: 048
  2. BEZATOL SR [Concomitant]
     Route: 048
  3. TELAVIC (TELAPREVIR) [Suspect]
     Indication: HEPATITIS C
     Route: 048
     Dates: start: 20120411, end: 20120423
  4. RIBAVIRIN [Concomitant]
     Indication: HEPATITIS C
     Route: 048
     Dates: start: 20120411, end: 20120423
  5. URSO 250 [Concomitant]
     Route: 048
  6. PEGINTERFERON ALFA-2B [Concomitant]
     Indication: HEPATITIS C
     Route: 051
     Dates: start: 20120411, end: 20120423
  7. NORVASC [Concomitant]
     Route: 048
     Dates: end: 20120406
  8. ZETIA [Concomitant]
     Route: 048

REACTIONS (1)
  - VIITH NERVE PARALYSIS [None]
